FAERS Safety Report 5046544-3 (Version None)
Quarter: 2006Q3

REPORT INFORMATION
  Report Type: 
  Country: None (occurrence: None)
  Receive Date: 20060706
  Receipt Date: 20060706
  Transmission Date: 20061208
  Serious: Yes (Death, Hospitalization)
  Sender: FDA-Public Use
  Company Number: None

PATIENT
  Age: 71 Year
  Sex: Male

DRUGS (15)
  1. ASPIRIN [Suspect]
     Indication: ISCHAEMIC STROKE
     Dosage: 325MG   QD   PO
     Route: 048
     Dates: start: 20060327, end: 20060404
  2. FLUTICASONE  SALMETEROL ADVAIR INHALER [Concomitant]
  3. IPRATROPIUM BROMIDE [Concomitant]
  4. NIFEDIPINE [Concomitant]
  5. ENALAPRIL MALEATE [Concomitant]
  6. CARVEDILOL [Concomitant]
  7. OMEPRAZOLE [Concomitant]
  8. THIAMINE [Concomitant]
  9. FLUNISOLIDE [Concomitant]
  10. ASPIRIN [Concomitant]
  11. MULTI-VITAMIN [Concomitant]
  12. ALBUTEROL MDI INHALER [Concomitant]
  13. LASIX [Concomitant]
  14. BENADRYL [Concomitant]
  15. CLARITIN [Concomitant]

REACTIONS (3)
  - APHASIA [None]
  - HAEMORRHAGIC STROKE [None]
  - LETHARGY [None]
